FAERS Safety Report 4327949-2 (Version None)
Quarter: 2004Q1

REPORT INFORMATION
  Report Type: 
  Country: None (occurrence: None)
  Receive Date: 20040325
  Receipt Date: 20040316
  Transmission Date: 20041129
  Serious: Yes (Disabling)
  Sender: FDA-Public Use
  Company Number: 2003UW11748

PATIENT
  Age: 82 Year
  Sex: Female
  Weight: 78.9259 kg

DRUGS (6)
  1. NOLVADEX [Suspect]
     Indication: BREAST CANCER
     Dosage: 20 MG DAILY PO
     Route: 048
     Dates: start: 19980827
  2. LEVOXYL [Concomitant]
  3. CALTRATE [Concomitant]
  4. CENTRUM [Concomitant]
  5. DIOVAN [Concomitant]
  6. ASPIRIN [Concomitant]

REACTIONS (4)
  - BLINDNESS UNILATERAL [None]
  - CATARACT [None]
  - HYPERTENSION [None]
  - RETINAL ARTERY OCCLUSION [None]
